FAERS Safety Report 20658777 (Version 2)
Quarter: 2022Q2

REPORT INFORMATION
  Report Type: Report from Study
  Country: US (occurrence: US)
  Receive Date: 20220331
  Receipt Date: 20220413
  Transmission Date: 20220721
  Serious: Yes (Hospitalization, Other)
  Sender: FDA-Public Use
  Company Number: US-OTSUKA-2022_017126

PATIENT
  Age: 0 Year
  Sex: Female
  Weight: 3 kg

DRUGS (3)
  1. ARIPIPRAZOLE [Suspect]
     Active Substance: ARIPIPRAZOLE
     Indication: Schizoaffective disorder
     Dosage: BEFORE LMP - 5 WEEKS PREGNANT
     Route: 064
  2. LURASIDONE [Suspect]
     Active Substance: LURASIDONE
     Indication: Schizoaffective disorder
     Dosage: 20-40 MG, BEFORE LMP - DELIVERY
     Route: 064
  3. LAMOTRIGINE [Suspect]
     Active Substance: LAMOTRIGINE
     Indication: Schizoaffective disorder
     Dosage: BEFORE LMP- 5 WEEKS PREGNANT
     Route: 064

REACTIONS (3)
  - Feeding disorder [Unknown]
  - Dehydration [Unknown]
  - Hyperbilirubinaemia [Unknown]

NARRATIVE: CASE EVENT DATE: 20190829
